FAERS Safety Report 8545781-0 (Version None)
Quarter: 2012Q3

REPORT INFORMATION
  Report Type: 
  Country: None (occurrence: None)
  Receive Date: 20120727
  Receipt Date: 20120716
  Transmission Date: 20120928
  Serious: Yes (Hospitalization, Disabling, Other)
  Sender: FDA-Public Use
  Company Number: US-009507513-0906USA03785

PATIENT

DRUGS (10)
  1. FOSAMAX [Suspect]
     Dosage: 10 MG, UNK
     Route: 048
     Dates: start: 19980805, end: 19980904
  2. OS-CAL (CALCITRIOL) [Concomitant]
  3. FOSAMAX [Suspect]
     Dosage: 10 MG, UNK
     Route: 048
     Dates: start: 19981028, end: 20000425
  4. FOSAMAX [Suspect]
     Dosage: 10 MG, UNK
     Route: 048
     Dates: start: 20001012, end: 20010418
  5. FOSAMAX [Suspect]
     Dosage: 70 MG, UNK
     Route: 048
     Dates: start: 20040928, end: 20061101
  6. PROTONIX [Concomitant]
     Indication: GASTRITIS
     Dates: start: 19980101, end: 20030101
  7. THERAPY UNSPECIFIED [Concomitant]
     Indication: HYPERTENSION
     Dates: start: 19950101, end: 20040101
  8. FOSAMAX [Suspect]
     Indication: OSTEOPOROSIS
     Dosage: 10 MG, UNK
     Route: 048
     Dates: start: 19961023, end: 19970509
  9. FOSAMAX [Suspect]
     Dosage: 70 MG, UNK
     Route: 048
     Dates: start: 20010723, end: 20010907
  10. FOSAMAX [Suspect]
     Dosage: 70 MG, UNK
     Route: 048
     Dates: start: 20030416, end: 20040912

REACTIONS (71)
  - HUMERUS FRACTURE [None]
  - URINARY TRACT INFECTION [None]
  - FRACTURE [None]
  - DENTAL FISTULA [None]
  - HYPOTONY OF EYE [None]
  - HYPERTENSION [None]
  - SKIN LESION [None]
  - MASS [None]
  - THERMAL BURN [None]
  - PAIN IN JAW [None]
  - MUSCLE SPASMS [None]
  - PLEURAL EFFUSION [None]
  - SINUS ARRHYTHMIA [None]
  - CHILLS [None]
  - MYELODYSPLASTIC SYNDROME [None]
  - COGNITIVE DISORDER [None]
  - DENTAL CARIES [None]
  - IRRITABILITY [None]
  - OSTEOARTHRITIS [None]
  - BLOOD DISORDER [None]
  - TRICUSPID VALVE INCOMPETENCE [None]
  - MITRAL VALVE INCOMPETENCE [None]
  - ANXIETY [None]
  - ORAL INFECTION [None]
  - TREMOR [None]
  - HYPOKALAEMIA [None]
  - HAEMOLYTIC URAEMIC SYNDROME [None]
  - DEPRESSION [None]
  - STOMATITIS [None]
  - DRY SKIN [None]
  - COLONIC POLYP [None]
  - OSTEOMYELITIS [None]
  - PYREXIA [None]
  - UPPER RESPIRATORY TRACT INFECTION [None]
  - PERIARTHRITIS [None]
  - URINARY INCONTINENCE [None]
  - FALL [None]
  - LIVER FUNCTION TEST ABNORMAL [None]
  - HYPOTENSION [None]
  - NEUTROPENIA [None]
  - RENAL FAILURE ACUTE [None]
  - PUBIS FRACTURE [None]
  - CHONDROCALCINOSIS [None]
  - CHRONIC SINUSITIS [None]
  - SCIATICA [None]
  - BLOOD PRESSURE INCREASED [None]
  - PELVIC FRACTURE [None]
  - CATARACT [None]
  - ADVERSE DRUG REACTION [None]
  - LUNG NEOPLASM [None]
  - MYALGIA [None]
  - THROMBOTIC THROMBOCYTOPENIC PURPURA [None]
  - DELIRIUM [None]
  - BACTERAEMIA [None]
  - CONSTIPATION [None]
  - FISTULA DISCHARGE [None]
  - IMPAIRED HEALING [None]
  - OROANTRAL FISTULA [None]
  - ARTHROPATHY [None]
  - HEADACHE [None]
  - ABDOMINAL DISCOMFORT [None]
  - ANAEMIA [None]
  - SINUS TACHYCARDIA [None]
  - OSTEONECROSIS OF JAW [None]
  - EAR PAIN [None]
  - EXOSTOSIS [None]
  - CALCINOSIS [None]
  - WEIGHT INCREASED [None]
  - TRANSAMINASES INCREASED [None]
  - GASTROOESOPHAGEAL REFLUX DISEASE [None]
  - GASTRITIS [None]
